FAERS Safety Report 4399492-6 (Version None)
Quarter: 2004Q3

REPORT INFORMATION
  Report Type: 
  Country: None (occurrence: None)
  Receive Date: 20040716
  Receipt Date: 20040604
  Transmission Date: 20050211
  Serious: Yes (Other)
  Sender: FDA-Public Use
  Company Number: US-ROCHE-370296

PATIENT
  Age: 46 Year
  Sex: Female

DRUGS (3)
  1. PEGASYS [Suspect]
     Indication: DRUG USE FOR UNKNOWN INDICATION
     Dosage: ROUTE REPORTED AS INJECTION.
     Route: 050
     Dates: start: 20030915
  2. COPEGUS [Suspect]
     Indication: DRUG USE FOR UNKNOWN INDICATION
     Route: 048
     Dates: start: 20030915, end: 20040604
  3. COPEGUS [Suspect]
     Route: 048
     Dates: start: 20040604

REACTIONS (14)
  - ABDOMINAL DISTENSION [None]
  - ARTHRITIS [None]
  - BACK PAIN [None]
  - DIZZINESS [None]
  - DYSPNOEA [None]
  - DYSPNOEA EXERTIONAL [None]
  - FATIGUE [None]
  - FULL BLOOD COUNT DECREASED [None]
  - HEADACHE [None]
  - MENINGITIS [None]
  - NECK PAIN [None]
  - PAIN [None]
  - PHARYNGOLARYNGEAL PAIN [None]
  - STOMACH DISCOMFORT [None]
